FAERS Safety Report 18974317 (Version 1)
Quarter: 2021Q1

REPORT INFORMATION
  Report Type: Report from Study
  Country: TW (occurrence: TW)
  Receive Date: 20210305
  Receipt Date: 20210305
  Transmission Date: 20210420
  Serious: Yes (Hospitalization, Other)
  Sender: FDA-Public Use
  Company Number: TW-BRISTOL-MYERS SQUIBB COMPANY-BMS-2021-019856

PATIENT
  Age: 76 Year
  Sex: Male

DRUGS (1)
  1. ABATACEPT [Suspect]
     Active Substance: ABATACEPT
     Indication: RHEUMATOID ARTHRITIS
     Dosage: 500 MILLIGRAM, QMO
     Route: 041
     Dates: start: 20141013

REACTIONS (6)
  - Hip fracture [Recovering/Resolving]
  - Femoral neck fracture [Unknown]
  - Contusion [Unknown]
  - Skin abrasion [Unknown]
  - Road traffic accident [Unknown]
  - Road traffic accident [Unknown]

NARRATIVE: CASE EVENT DATE: 20210201
